FAERS Safety Report 15855189 (Version 14)
Quarter: 2020Q3

REPORT INFORMATION
  Report Type: Spontaneous
  Country: CA (occurrence: CA)
  Receive Date: 20190122
  Receipt Date: 20200922
  Transmission Date: 20201102
  Serious: Yes (Other)
  Sender: FDA-Public Use
  Company Number: CA-PFIZER INC-2017546580

PATIENT
  Age: 47 Year
  Sex: Female
  Weight: 79 kg

DRUGS (56)
  1. ENBREL [Suspect]
     Active Substance: ETANERCEPT
     Indication: RHEUMATOID ARTHRITIS
     Dosage: UNK
     Route: 065
  2. TOFACITINIB CITRATE [Suspect]
     Active Substance: TOFACITINIB CITRATE
     Dosage: UNK
  3. METHOTREXATE SODIUM. [Suspect]
     Active Substance: METHOTREXATE SODIUM
     Indication: RHEUMATOID ARTHRITIS
     Dosage: 20 MG, WEEKLY
     Route: 048
  4. HUMIRA [Suspect]
     Active Substance: ADALIMUMAB
     Dosage: 40 MG, UNK
     Route: 065
  5. HUMIRA [Suspect]
     Active Substance: ADALIMUMAB
     Route: 058
  6. RITUXAN [Suspect]
     Active Substance: RITUXIMAB
     Dosage: UNK
  7. ADALIMUMAB [Suspect]
     Active Substance: ADALIMUMAB
     Dosage: 40 MG
     Route: 058
  8. XELJANZ [Suspect]
     Active Substance: TOFACITINIB CITRATE
     Indication: RHEUMATOID ARTHRITIS
     Dosage: 50 MG, 2X/DAY
     Route: 048
  9. XELJANZ [Suspect]
     Active Substance: TOFACITINIB CITRATE
     Dosage: UNK
     Route: 065
  10. TOFACITINIB CITRATE [Suspect]
     Active Substance: TOFACITINIB CITRATE
     Indication: RHEUMATOID ARTHRITIS
     Dosage: UNK
     Route: 065
  11. SIMPONI [Suspect]
     Active Substance: GOLIMUMAB
     Route: 058
  12. APO?LEFLUNOMIDE [Suspect]
     Active Substance: LEFLUNOMIDE
     Dosage: UNK
  13. HYDROXYCHLOROQUINE SULFATE. [Suspect]
     Active Substance: HYDROXYCHLOROQUINE SULFATE
     Indication: RHEUMATOID ARTHRITIS
     Dosage: UNK
     Route: 065
  14. RABEPRAZOLE SODIUM. [Concomitant]
     Active Substance: RABEPRAZOLE SODIUM
     Dosage: UNK
  15. SULFASALAZINE. [Suspect]
     Active Substance: SULFASALAZINE
     Indication: RHEUMATOID ARTHRITIS
     Dosage: UNK
     Route: 065
  16. HUMIRA [Suspect]
     Active Substance: ADALIMUMAB
     Dosage: 40 MILLIGRAM, Q (EVERY)14 DAY
     Route: 058
  17. RITUXAN [Suspect]
     Active Substance: RITUXIMAB
     Dosage: 1 G, UNK
     Route: 042
  18. CIMZIA [Suspect]
     Active Substance: CERTOLIZUMAB PEGOL
     Dosage: UNK
     Route: 058
  19. ORENCIA [Suspect]
     Active Substance: ABATACEPT
     Dosage: 750 MG, MONTHLY
     Route: 065
  20. RABEPRAZOLE SODIUM. [Concomitant]
     Active Substance: RABEPRAZOLE SODIUM
     Dosage: 20 MG, 1X/DAY
     Route: 048
  21. HUMIRA [Suspect]
     Active Substance: ADALIMUMAB
     Indication: RHEUMATOID ARTHRITIS
     Dosage: 40 MG, EVERY 10 DAYS
     Route: 058
  22. HUMIRA [Suspect]
     Active Substance: ADALIMUMAB
     Dosage: UNK
     Route: 065
  23. SIMPONI [Suspect]
     Active Substance: GOLIMUMAB
     Dosage: UNK
     Route: 065
  24. RITUXAN [Suspect]
     Active Substance: RITUXIMAB
     Dosage: UNK
     Route: 058
  25. CIMZIA [Suspect]
     Active Substance: CERTOLIZUMAB PEGOL
     Indication: RHEUMATOID ARTHRITIS
     Dosage: UNK
     Route: 065
  26. HYDROXYCHLOROQUINE [Suspect]
     Active Substance: HYDROXYCHLOROQUINE
     Indication: RHEUMATOID ARTHRITIS
     Dosage: UNK
     Route: 065
  27. TOCILIZUMAB. [Suspect]
     Active Substance: TOCILIZUMAB
     Indication: RHEUMATOID ARTHRITIS
     Dosage: UNK
     Route: 065
  28. XELJANZ [Suspect]
     Active Substance: TOFACITINIB CITRATE
     Dosage: 5 MG, 2X/DAY
     Route: 048
  29. SIMPONI [Suspect]
     Active Substance: GOLIMUMAB
     Dosage: 50 MG, MONTHLY
     Route: 058
  30. HYDROXYCHLOROQUINE SULFATE. [Suspect]
     Active Substance: HYDROXYCHLOROQUINE SULFATE
     Dosage: UNK
  31. ADALIMUMAB [Suspect]
     Active Substance: ADALIMUMAB
     Indication: RHEUMATOID ARTHRITIS
     Dosage: 40 MILLIGRAM, Q2WK
     Route: 058
  32. SULFASALAZINE. [Suspect]
     Active Substance: SULFASALAZINE
     Indication: RHEUMATOID ARTHRITIS
     Dosage: UNK
     Route: 065
  33. KEVZARA [Suspect]
     Active Substance: SARILUMAB
     Indication: RHEUMATOID ARTHRITIS
     Dosage: UNK
  34. HUMIRA [Suspect]
     Active Substance: ADALIMUMAB
     Dosage: 40 MG, UNK
     Route: 058
  35. HUMIRA [Suspect]
     Active Substance: ADALIMUMAB
     Dosage: 40 MG, UNK
     Route: 065
  36. ABATACEPT [Suspect]
     Active Substance: ABATACEPT
     Indication: RHEUMATOID ARTHRITIS
     Dosage: UNK
     Route: 065
  37. PLAQUENIL [Suspect]
     Active Substance: HYDROXYCHLOROQUINE SULFATE
     Indication: RHEUMATOID ARTHRITIS
     Dosage: 200 MG, 2X/DAY
     Route: 048
  38. ADALIMUMAB [Suspect]
     Active Substance: ADALIMUMAB
     Dosage: 40 MILLIGRAM, Q2WK
     Route: 058
  39. RITUXIMAB. [Suspect]
     Active Substance: RITUXIMAB
     Dosage: UNK
  40. METHOTREXATE SODIUM. [Suspect]
     Active Substance: METHOTREXATE SODIUM
     Dosage: UNK
  41. HUMIRA [Suspect]
     Active Substance: ADALIMUMAB
     Route: 065
  42. SIMPONI [Suspect]
     Active Substance: GOLIMUMAB
     Indication: RHEUMATOID ARTHRITIS
     Dosage: UNK
     Route: 065
  43. RITUXAN [Suspect]
     Active Substance: RITUXIMAB
     Indication: RHEUMATOID ARTHRITIS
     Dosage: 1 G, UNK
     Route: 042
  44. RITUXAN [Suspect]
     Active Substance: RITUXIMAB
     Route: 042
  45. APO?LEFLUNOMIDE [Suspect]
     Active Substance: LEFLUNOMIDE
     Indication: RHEUMATOID ARTHRITIS
     Dosage: UNK
  46. PLAQUENIL [Suspect]
     Active Substance: HYDROXYCHLOROQUINE SULFATE
     Dosage: 200 MG, 2X/DAY
     Route: 048
  47. ORENCIA [Suspect]
     Active Substance: ABATACEPT
     Indication: RHEUMATOID ARTHRITIS
     Dosage: 750 MG, MONTHLY
     Route: 065
  48. ORENCIA [Suspect]
     Active Substance: ABATACEPT
     Dosage: UNK
     Route: 065
  49. ORENCIA [Suspect]
     Active Substance: ABATACEPT
     Dosage: UNK
     Route: 065
  50. METHOTREXATE SODIUM. [Suspect]
     Active Substance: METHOTREXATE SODIUM
     Indication: RHEUMATOID ARTHRITIS
     Dosage: UNK
     Route: 058
  51. KEVZARA [Suspect]
     Active Substance: SARILUMAB
     Dosage: UNK
  52. SIMPONI [Suspect]
     Active Substance: GOLIMUMAB
     Dosage: UNK
     Route: 058
  53. ADALIMUMAB [Suspect]
     Active Substance: ADALIMUMAB
     Dosage: 40 MILLIGRAM, 1 EVERY 14 DAYS
     Route: 065
  54. LEFLUNOMIDE. [Suspect]
     Active Substance: LEFLUNOMIDE
     Indication: RHEUMATOID ARTHRITIS
     Dosage: UNK
     Route: 065
  55. SARILUMAB [Suspect]
     Active Substance: SARILUMAB
     Indication: RHEUMATOID ARTHRITIS
     Dosage: UNK
     Route: 065
  56. RITUXIMAB. [Suspect]
     Active Substance: RITUXIMAB
     Indication: RHEUMATOID ARTHRITIS
     Dosage: 1 G
     Route: 042

REACTIONS (14)
  - Drug ineffective [Unknown]
  - Arthralgia [Unknown]
  - Therapeutic product effect decreased [Unknown]
  - Incorrect route of product administration [Unknown]
  - Rheumatoid arthritis [Unknown]
  - Oral discomfort [Unknown]
  - Contraindicated product administered [Unknown]
  - Treatment failure [Unknown]
  - Off label use [Unknown]
  - Arthritis [Unknown]
  - Inflammation [Unknown]
  - Joint swelling [Unknown]
  - Joint stiffness [Unknown]
  - Nausea [Unknown]
